FAERS Safety Report 25107311 (Version 1)
Quarter: 2025Q1

REPORT INFORMATION
  Report Type: Report from Study
  Country: CA (occurrence: CA)
  Receive Date: 20250321
  Receipt Date: 20250321
  Transmission Date: 20250408
  Serious: Yes (Other)
  Sender: ABBVIE
  Company Number: CA-ABBVIE-6177945

PATIENT
  Sex: Male

DRUGS (1)
  1. RINVOQ [Suspect]
     Active Substance: UPADACITINIB
     Indication: Crohn^s disease
     Dosage: FROM STRENGTH 30 MILLIGRAM
     Route: 048

REACTIONS (3)
  - Colon cancer [Unknown]
  - Abdominal pain [Unknown]
  - Stoma site discharge [Unknown]
